FAERS Safety Report 23484651 (Version 3)
Quarter: 2024Q2

REPORT INFORMATION
  Report Type: Spontaneous
  Country: JP (occurrence: JP)
  Receive Date: 20240206
  Receipt Date: 20240611
  Transmission Date: 20240716
  Serious: Yes (Hospitalization, Other)
  Sender: FDA-Public Use
  Company Number: JP-MSD-2401JPN007308JAA

PATIENT
  Age: 70 Year
  Sex: Male

DRUGS (1)
  1. KEYTRUDA [Suspect]
     Active Substance: PEMBROLIZUMAB
     Indication: Bladder transitional cell carcinoma stage IV
     Dosage: 200 MILLIGRAM, Q3W
     Route: 041
     Dates: start: 20211208, end: 20220308

REACTIONS (2)
  - Malignant neoplasm progression [Recovering/Resolving]
  - Rectal obstruction [Recovering/Resolving]

NARRATIVE: CASE EVENT DATE: 20220322
